FAERS Safety Report 19595136 (Version 1)
Quarter: 2021Q3

REPORT INFORMATION
  Report Type: Spontaneous
  Country: US (occurrence: US)
  Receive Date: 20210722
  Receipt Date: 20210722
  Transmission Date: 20211014
  Serious: Yes (Death, Life-Threatening, Hospitalization)
  Sender: FDA-Public Use
  Company Number: US-TEVA-2021-US-1933839

PATIENT
  Age: 14 Year
  Sex: Female

DRUGS (7)
  1. ATROPINE. [Suspect]
     Active Substance: ATROPINE
     Indication: NODAL ARRHYTHMIA
     Route: 065
  2. CALCIUM [Suspect]
     Active Substance: CALCIUM
     Indication: ACIDOSIS
     Route: 065
  3. ISOPROTERENOL. [Suspect]
     Active Substance: ISOPROTERENOL
     Indication: NODAL ARRHYTHMIA
     Route: 065
  4. NOREPINEPHRINE. [Suspect]
     Active Substance: NOREPINEPHRINE
     Indication: HYPOTENSION
     Route: 065
  5. DILTIAZEM. [Suspect]
     Active Substance: DILTIAZEM
     Indication: TOXICITY TO VARIOUS AGENTS
     Route: 048
  6. SODIUM BICARBONATE. [Suspect]
     Active Substance: SODIUM BICARBONATE
     Indication: ACIDOSIS
     Route: 065
  7. GLUCAGON. [Suspect]
     Active Substance: GLUCAGON
     Indication: NODAL ARRHYTHMIA
     Route: 065

REACTIONS (7)
  - Drug ineffective [Unknown]
  - Seizure [Unknown]
  - Hypotension [Unknown]
  - Nodal arrhythmia [Unknown]
  - Toxicity to various agents [Fatal]
  - Acute respiratory distress syndrome [Unknown]
  - Acidosis [Unknown]
